FAERS Safety Report 10228114 (Version 2)
Quarter: 2014Q2

REPORT INFORMATION
  Report Type: Spontaneous
  Country: GB (occurrence: GB)
  Receive Date: 20140610
  Receipt Date: 20140630
  Transmission Date: 20141212
  Serious: Yes (Hospitalization)
  Sender: FDA-Public Use
  Company Number: GB-BAYER-2014-080585

PATIENT
  Age: 2 Month
  Sex: Male

DRUGS (5)
  1. ACETYLSALICYLIC ACID (} 100 MG) [Suspect]
     Indication: PRODUCT USED FOR UNKNOWN INDICATION
     Route: 063
  2. HEPARIN [Suspect]
     Indication: PRODUCT USED FOR UNKNOWN INDICATION
     Route: 063
  3. ROTAVIRUS VACCINE, LIVE, ORAL, TETRAVALENT [Suspect]
     Indication: PROPHYLAXIS
     Dosage: 1.5 ML, QD
     Route: 048
     Dates: start: 20140415, end: 20140415
  4. PEDIACEL [DIPHTH,HAEMOPH INFL INFL,PERTUSS ACELL,POLIO,TETAN] [Concomitant]
     Route: 030
  5. PREVENAR [PNEUMOCOCCAL CONJUGATE VACCINE] [Concomitant]
     Route: 030

REACTIONS (7)
  - Haematemesis [Recovered/Resolved]
  - Peripheral coldness [Recovered/Resolved]
  - Oesophagitis [Recovered/Resolved]
  - Gastritis [Recovered/Resolved]
  - Melaena [Recovered/Resolved]
  - Vomiting [Recovered/Resolved]
  - Exposure during breast feeding [Unknown]
